FAERS Safety Report 18745490 (Version 3)
Quarter: 2021Q1

REPORT INFORMATION
  Report Type: Spontaneous
  Country: US (occurrence: US)
  Receive Date: 20210115
  Receipt Date: 20210215
  Transmission Date: 20210419
  Serious: No
  Sender: FDA-Public Use
  Company Number: US-GLAXOSMITHKLINE-US2021AMR005670

PATIENT
  Sex: Female

DRUGS (3)
  1. ZEJULA [Suspect]
     Active Substance: NIRAPARIB
     Indication: OVARIAN CANCER
     Dosage: 300 MG
     Route: 065
     Dates: start: 20201217, end: 20210101
  2. ZEJULA [Suspect]
     Active Substance: NIRAPARIB
     Dosage: 300 MG
     Dates: start: 20201221
  3. ZEJULA [Suspect]
     Active Substance: NIRAPARIB
     Dosage: 100 MG, QD

REACTIONS (3)
  - Diarrhoea [Recovered/Resolved]
  - Nausea [Recovered/Resolved]
  - Platelet count abnormal [Unknown]
